FAERS Safety Report 6048415-2 (Version None)
Quarter: 2009Q1

REPORT INFORMATION
  Report Type: 
  Country: None (occurrence: None)
  Receive Date: 20090123
  Receipt Date: 20090116
  Transmission Date: 20090719
  Serious: Yes (Hospitalization)
  Sender: FDA-Public Use
  Company Number: A0764401A

PATIENT
  Age: 40 Year
  Sex: Male
  Weight: 81.8 kg

DRUGS (1)
  1. AVANDIA [Suspect]
     Dosage: 4MG PER DAY
     Route: 048
     Dates: start: 20030216, end: 20070501

REACTIONS (2)
  - CARDIAC FAILURE CONGESTIVE [None]
  - HEART RATE IRREGULAR [None]
